FAERS Safety Report 9555565 (Version 3)
Quarter: 2013Q4

REPORT INFORMATION
  Report Type: Spontaneous
  Country: US (occurrence: US)
  Receive Date: 20130926
  Receipt Date: 20131016
  Transmission Date: 20140711
  Serious: Yes (Other)
  Sender: FDA-Public Use
  Company Number: US-SANOFI-AVENTIS-2013SA094318

PATIENT
  Age: 78 Year
  Sex: Male

DRUGS (6)
  1. LANTUS SOLOSTAR [Suspect]
     Indication: TYPE 2 DIABETES MELLITUS
     Dosage: DOSE:40 UNIT(S)
     Route: 058
     Dates: start: 201309
  2. LANTUS SOLOSTAR [Suspect]
     Indication: TYPE 2 DIABETES MELLITUS
     Dosage: DOSE:46 UNIT(S)
     Route: 051
     Dates: start: 20130913
  3. LANTUS [Suspect]
     Dosage: DOSE:40 UNIT(S)
     Route: 065
     Dates: start: 2006
  4. NOVOLOG [Suspect]
     Dosage: DOSE:6 UNIT(S)
     Route: 065
  5. SOLOSTAR [Concomitant]
     Indication: TYPE 2 DIABETES MELLITUS
     Dates: start: 201309
  6. SOLOSTAR [Concomitant]
     Indication: TYPE 2 DIABETES MELLITUS
     Dates: start: 201309

REACTIONS (6)
  - Chronic obstructive pulmonary disease [Unknown]
  - Dyspnoea [Unknown]
  - Wheelchair user [Unknown]
  - Abasia [Recovering/Resolving]
  - Cardiac failure congestive [Unknown]
  - Drug administration error [Unknown]
